FAERS Safety Report 25589676 (Version 1)
Quarter: 2025Q3

REPORT INFORMATION
  Report Type: Spontaneous
  Country: CN (occurrence: CN)
  Receive Date: 20250722
  Receipt Date: 20250722
  Transmission Date: 20251020
  Serious: Yes (Hospitalization)
  Sender: ROCHE
  Company Number: CN-BoehringerIngelheim-2025-BI-083882

PATIENT
  Age: 90 Year
  Sex: Female
  Weight: 60 kg

DRUGS (3)
  1. ALTEPLASE [Suspect]
     Active Substance: ALTEPLASE
     Indication: Cerebral infarction
     Route: 042
     Dates: start: 20250713, end: 20250713
  2. ALTEPLASE [Suspect]
     Active Substance: ALTEPLASE
     Indication: Cerebral artery occlusion
  3. ALTEPLASE [Suspect]
     Active Substance: ALTEPLASE
     Indication: Cerebral artery stenosis

REACTIONS (3)
  - Gingival bleeding [Recovering/Resolving]
  - Haemorrhage subcutaneous [Recovering/Resolving]
  - Blood fibrinogen decreased [Recovering/Resolving]

NARRATIVE: CASE EVENT DATE: 20250713
